FAERS Safety Report 7081550-9 (Version None)
Quarter: 2010Q4

REPORT INFORMATION
  Report Type: 
  Country: None (occurrence: None)
  Receive Date: 20101102
  Receipt Date: 20101102
  Transmission Date: 20110411
  Serious: No
  Sender: FDA-Public Use
  Company Number: None

PATIENT
  Sex: Female

DRUGS (1)
  1. BETASERON [Suspect]
     Dosage: 3 MG SC  INJECT 0.25MG (1ML) SUBCUTANEOUSLY EVERY OTHER DAY
     Route: 058

REACTIONS (1)
  - SKIN DISORDER [None]
